FAERS Safety Report 7437489-X (Version None)
Quarter: 2011Q2

REPORT INFORMATION
  Report Type: 
  Country: None (occurrence: None)
  Receive Date: 20110426
  Receipt Date: 20110415
  Transmission Date: 20111010
  Serious: Yes (Hospitalization)
  Sender: FDA-Public Use
  Company Number: PHHY2011GB31597

PATIENT
  Age: 91 Year
  Sex: Female

DRUGS (4)
  1. FLUOXETINE [Suspect]
     Indication: DEPRESSION
     Dosage: UNK UKN, UNK
  2. FLUOXETINE [Suspect]
     Dosage: 40 MG, QD
     Route: 048
     Dates: end: 20110307
  3. FERROUS SULFATE TAB [Concomitant]
     Dosage: UNK UKN, UNK
  4. PARACETAMOL [Concomitant]
     Dosage: UNK UKN, UNK

REACTIONS (2)
  - HYPONATRAEMIA [None]
  - FALL [None]
